FAERS Safety Report 14917807 (Version 1)
Quarter: 2018Q2

REPORT INFORMATION
  Report Type: Report from Study
  Country: BR (occurrence: BR)
  Receive Date: 20180521
  Receipt Date: 20180521
  Transmission Date: 20180711
  Serious: Yes (Other)
  Sender: FDA-Public Use
  Company Number: BR-NODEN PHARMA DAC-NOD-2018-000040

PATIENT
  Sex: Female
  Weight: 72 kg

DRUGS (1)
  1. RASILEZ [Suspect]
     Active Substance: ALISKIREN
     Indication: HYPERTENSION
     Dosage: 1 DF, QD (3 YEARS AGO)
     Route: 048

REACTIONS (2)
  - Deafness [Not Recovered/Not Resolved]
  - Excessive cerumen production [Unknown]
